FAERS Safety Report 16303359 (Version 2)
Quarter: 2019Q2

REPORT INFORMATION
  Report Type: Report from Study
  Country: ZA (occurrence: ZA)
  Receive Date: 20190513
  Receipt Date: 20190531
  Transmission Date: 20190711
  Serious: Yes (Hospitalization)
  Sender: FDA-Public Use
  Company Number: ZA-SA-2019SA101386

PATIENT
  Age: 59 Year
  Sex: Female

DRUGS (12)
  1. GLUCOPHAGE [Concomitant]
     Active Substance: METFORMIN HYDROCHLORIDE
     Dosage: 1000 MG, BEFORE SLEEP, BEFORE BREAKFAST
     Dates: start: 20190402
  2. ADCO-SIMVASTATIN [Concomitant]
     Active Substance: SIMVASTATIN
     Dosage: 20 MG, HS
     Dates: start: 20190402
  3. OPTISULIN (INSULIN GLARGINE) [Suspect]
     Active Substance: INSULIN GLARGINE
     Dosage: 34 U, HS
  4. OPTISULIN (INSULIN GLARGINE) [Suspect]
     Active Substance: INSULIN GLARGINE
     Dosage: 32 U, QD
     Dates: start: 20190327
  5. NOVORAPID [Concomitant]
     Active Substance: INSULIN ASPART
     Dosage: 38 U, BEFORE BREAKFAST, BEFORE LUNCH, BEFORE SLEEP
     Dates: start: 20190402
  6. DISPRIN CARDIOCARE [Concomitant]
     Active Substance: ASPIRIN
     Dosage: 100 MG, BEFORE BREAKFAST
     Dates: start: 20190402
  7. ADCO ZILDEM [Concomitant]
     Active Substance: DILTIAZEM HYDROCHLORIDE
     Dosage: 180 MG, BEFORE BREAK
     Dates: start: 20190402
  8. NOVORAPID [Concomitant]
     Active Substance: INSULIN ASPART
     Dosage: BB-34 UNITS, BL-34 UNITS, BS-34 UNITS
     Dates: start: 20190402
  9. GLUCOPHAGE [Concomitant]
     Active Substance: METFORMIN HYDROCHLORIDE
     Dosage: AB-1000 MG, AS-1000MG,
     Dates: start: 20190402
  10. NO STUDY DRUG GIVEN [Suspect]
     Active Substance: UNSPECIFIED INGREDIENT
  11. MYLAN FUROSEMIDE [Concomitant]
     Active Substance: FUROSEMIDE
     Dosage: 80 MG, BEFORE SLEEP, BEFORE BREAKFAST
     Dates: start: 20190402
  12. SANDOZ CARBAMAZEPINE [Concomitant]
     Dosage: 200 MG BEFORE BREAKFAST, BEFORE SLEEP
     Dates: start: 20190402

REACTIONS (8)
  - Limb injury [Not Recovered/Not Resolved]
  - Pain [Recovered/Resolved]
  - Pain in extremity [Unknown]
  - Blood glucose increased [Unknown]
  - Skin discolouration [Unknown]
  - Peripheral swelling [Not Recovered/Not Resolved]
  - Decreased appetite [Recovered/Resolved]
  - Hypoaesthesia [Not Recovered/Not Resolved]

NARRATIVE: CASE EVENT DATE: 20190315
